FAERS Safety Report 5587706-6 (Version None)
Quarter: 2007Q4

REPORT INFORMATION
  Report Type: 
  Country: None (occurrence: None)
  Receive Date: 20071207
  Receipt Date: 20071029
  Transmission Date: 20080405
  Serious: Yes (Other)
  Sender: FDA-Public Use
  Company Number: 07-456

PATIENT
  Age: 53 Year
  Sex: Male
  Weight: 83.9154 kg

DRUGS (3)
  1. ALEVE [Suspect]
     Indication: PROCEDURAL PAIN
     Dosage: 220 MG-440 MG, QD, ORAL
     Route: 048
     Dates: start: 20070915
  2. HIGH BLOOD PRESSURE MEDICATION [Concomitant]
  3. LASIX [Concomitant]

REACTIONS (2)
  - BLOOD POTASSIUM INCREASED [None]
  - OEDEMA PERIPHERAL [None]
